FAERS Safety Report 13219880 (Version 3)
Quarter: 2017Q3

REPORT INFORMATION
  Report Type: Report from Study
  Country: CZ (occurrence: CZ)
  Receive Date: 20170210
  Receipt Date: 20170915
  Transmission Date: 20171127
  Serious: Yes (Hospitalization, Other)
  Sender: FDA-Public Use
  Company Number: CZ-BIOGEN-2016BI00278212

PATIENT
  Age: 26 Year
  Sex: Female

DRUGS (6)
  1. TYSABRI [Suspect]
     Active Substance: NATALIZUMAB
     Route: 065
     Dates: end: 201212
  2. TYSABRI [Suspect]
     Active Substance: NATALIZUMAB
     Route: 065
     Dates: end: 20170803
  3. TYSABRI [Suspect]
     Active Substance: NATALIZUMAB
     Route: 065
     Dates: end: 201301
  4. TYSABRI [Suspect]
     Active Substance: NATALIZUMAB
     Route: 065
     Dates: start: 201305, end: 201707
  5. TYSABRI [Suspect]
     Active Substance: NATALIZUMAB
     Indication: MULTIPLE SCLEROSIS
     Route: 065
     Dates: start: 201111
  6. TYSABRI [Suspect]
     Active Substance: NATALIZUMAB
     Route: 065
     Dates: start: 20111213

REACTIONS (2)
  - Leiomyosarcoma [Recovered/Resolved]
  - Leiomyosarcoma metastatic [Not Recovered/Not Resolved]

NARRATIVE: CASE EVENT DATE: 20160503
